FAERS Safety Report 25820400 (Version 1)
Quarter: 2025Q3

REPORT INFORMATION
  Report Type: Spontaneous
  Country: CH (occurrence: CH)
  Receive Date: 20250919
  Receipt Date: 20250919
  Transmission Date: 20251020
  Serious: Yes (Hospitalization, Other)
  Sender: CHEPLAPHARM
  Company Number: None

PATIENT
  Age: 55 Year
  Sex: Male

DRUGS (20)
  1. OLANZAPINE [Suspect]
     Active Substance: OLANZAPINE
     Dosage: IN THE EMERGENCY DEPARTMENT?DAILY DOSE: 7.5 MILLIGRAM
     Dates: start: 20250827, end: 20250827
  2. OLANZAPINE [Suspect]
     Active Substance: OLANZAPINE
     Dosage: DAILY DOSE: 5 MILLIGRAM
     Dates: start: 20250829, end: 20250829
  3. OLANZAPINE [Suspect]
     Active Substance: OLANZAPINE
     Dosage: DAILY DOSE: 7.5 MILLIGRAM
     Dates: start: 20250830, end: 20250831
  4. QUETIAPINE [Suspect]
     Active Substance: QUETIAPINE
     Dosage: IN THE EMERGENCY DEPARTMENT?DAILY DOSE: 50 MILLIGRAM
     Dates: start: 20250827, end: 20250827
  5. QUETIAPINE [Suspect]
     Active Substance: QUETIAPINE
     Dosage: DAILY DOSE: 25 MILLIGRAM
     Dates: start: 20250828, end: 20250828
  6. QUETIAPINE [Suspect]
     Active Substance: QUETIAPINE
  7. LITHIUM SULFATE [Suspect]
     Active Substance: LITHIUM SULFATE
     Dosage: DAILY DOSE: 24 MILLIMOL
     Dates: start: 20250829, end: 20250831
  8. LITHIUM SULFATE [Suspect]
     Active Substance: LITHIUM SULFATE
     Dosage: DAILY DOSE: 18 MILLIMOL
     Dates: start: 20250901
  9. LITHIUM SULFATE [Suspect]
     Active Substance: LITHIUM SULFATE
     Dosage: THE MORNING?DAILY DOSE: 6 MILLIMOL
     Dates: end: 20250828
  10. LITHIUM SULFATE [Suspect]
     Active Substance: LITHIUM SULFATE
     Dosage: THE EVENING?DAILY DOSE: 12 MILLIMOL
     Dates: end: 20250828
  11. AKINETON [Concomitant]
     Active Substance: BIPERIDEN HYDROCHLORIDE
     Dates: start: 20250829, end: 20250829
  12. AKINETON [Concomitant]
     Active Substance: BIPERIDEN HYDROCHLORIDE
  13. Calcimagon D3 Forte [Concomitant]
     Dosage: 1000MG/800IU ONCE DAILY?DAILY DOSE: 1 DOSAGE FORM
  14. CLOMETHIAZOLE [Concomitant]
     Active Substance: CLOMETHIAZOLE
     Dosage: DAILY DOSE: 384 MILLIGRAM
     Dates: start: 20250828, end: 20250829
  15. LACTITOL [Concomitant]
     Active Substance: LACTITOL
     Dosage: REDUCED TO 30 ML/DAY FROM 1 SEPTEMBER ?DAILY DOSE: 30 MILLILITRE
     Dates: start: 20250901
  16. LACTITOL [Concomitant]
     Active Substance: LACTITOL
     Dosage: LONG-TERM 30 ML 3X/DAY?DAILY DOSE: 90 MILLILITRE
     Dates: end: 20250831
  17. MELATONIN [Concomitant]
     Active Substance: MELATONIN
     Dosage: USUAL TREATMENT 4 MG/DAY?DAILY DOSE: 4 MILLIGRAM
     Dates: end: 20250831
  18. ACETAMINOPHEN [Concomitant]
     Active Substance: ACETAMINOPHEN
     Dates: start: 20250828, end: 20250828
  19. IMOVANE [Concomitant]
     Active Substance: ZOPICLONE
     Dosage: DAILY DOSE: 7.5 MILLIGRAM
     Dates: start: 20250827, end: 20250828
  20. URISPAS [Concomitant]
     Active Substance: FLAVOXATE HYDROCHLORIDE
     Dosage: DAILY DOSE: 600 MILLIGRAM

REACTIONS (2)
  - Electrocardiogram QT prolonged [Recovered/Resolved]
  - Hypokalaemia [Unknown]

NARRATIVE: CASE EVENT DATE: 20250901
